FAERS Safety Report 7389836-5 (Version None)
Quarter: 2011Q1

REPORT INFORMATION
  Report Type: 
  Country: None (occurrence: None)
  Receive Date: 20110323
  Receipt Date: 20110315
  Transmission Date: 20110831
  Serious: Yes (Hospitalization, Other)
  Sender: FDA-Public Use
  Company Number: 2009-198567-NL

PATIENT
  Age: 21 Year
  Sex: Female
  Weight: 69.4003 kg

DRUGS (3)
  1. AMITRIPTYLENE [Concomitant]
  2. NUVARING [Suspect]
     Indication: CONTRACEPTION
     Dates: start: 20061221
  3. CEPHALEXIN [Concomitant]

REACTIONS (24)
  - CULTURE URINE POSITIVE [None]
  - PULMONARY EMBOLISM [None]
  - VAGINITIS BACTERIAL [None]
  - PREGNANCY [None]
  - PELVIC PAIN [None]
  - DYSPAREUNIA [None]
  - GASTROENTERITIS [None]
  - MENORRHAGIA [None]
  - MENSTRUATION DELAYED [None]
  - MYOCARDIAL INFARCTION [None]
  - WEIGHT DECREASED [None]
  - MIGRAINE [None]
  - BRONCHITIS [None]
  - ADNEXA UTERI CYST [None]
  - DEPRESSED MOOD [None]
  - CONTUSION [None]
  - ESCHERICHIA TEST POSITIVE [None]
  - HYPEREMESIS GRAVIDARUM [None]
  - DECREASED APPETITE [None]
  - VIRAL UPPER RESPIRATORY TRACT INFECTION [None]
  - HEADACHE [None]
  - VIRAL INFECTION [None]
  - VAGINAL HAEMORRHAGE [None]
  - DYSMENORRHOEA [None]
